FAERS Safety Report 19271046 (Version 2)
Quarter: 2022Q2

REPORT INFORMATION
  Report Type: Spontaneous
  Country: CN (occurrence: None)
  Receive Date: 20210518
  Receipt Date: 20220624
  Transmission Date: 20220721
  Serious: Yes (Other)
  Sender: FDA-Public Use
  Company Number: CN-ROCHE-2828545

PATIENT
  Sex: Female
  Weight: 14 kg

DRUGS (27)
  1. VALCYTE [Suspect]
     Active Substance: VALGANCICLOVIR HYDROCHLORIDE
     Indication: Infection prophylaxis
     Route: 065
     Dates: start: 20200907
  2. ACTEMRA [Suspect]
     Active Substance: TOCILIZUMAB
     Indication: Inflammation
     Dosage: TOTAL 6 TIMES
     Route: 058
     Dates: start: 20201119, end: 20210129
  3. ACTEMRA [Suspect]
     Active Substance: TOCILIZUMAB
     Dosage: 21/MAY/2021, 18/JUN/2021, 27/AUG/2021, 08/OCT/2021, /DEC/2021, /MAY/2022,
     Route: 058
     Dates: start: 20210219, end: 20210423
  4. MABTHERA [Suspect]
     Active Substance: RITUXIMAB
     Indication: Infection prophylaxis
     Route: 065
     Dates: start: 202112
  5. CEFOPERAZONE [Concomitant]
     Active Substance: CEFOPERAZONE
  6. SULBACTAM [Concomitant]
     Active Substance: SULBACTAM
  7. MEROPENEM [Concomitant]
     Active Substance: MEROPENEM
  8. LATAMOXEF [Concomitant]
     Active Substance: LATAMOXEF
  9. GANCICLOVIR [Concomitant]
     Active Substance: GANCICLOVIR
  10. PERAMIVIR [Concomitant]
     Active Substance: PERAMIVIR
  11. DEXTROSE\SODIUM CHLORIDE [Concomitant]
     Active Substance: DEXTROSE\SODIUM CHLORIDE
  12. POTASSIUM CHLORIDE [Concomitant]
     Active Substance: POTASSIUM CHLORIDE
  13. ERYTHROPOIETIN [Concomitant]
     Active Substance: ERYTHROPOIETIN
  14. AZITHROMYCIN [Concomitant]
     Active Substance: AZITHROMYCIN
  15. FEBUXOSTAT [Concomitant]
     Active Substance: FEBUXOSTAT
  16. PIPERAZINE BISFERULATE [Concomitant]
     Active Substance: PIPERAZINE BISFERULATE
  17. SODIUM CITRATE [Concomitant]
     Active Substance: SODIUM CITRATE
  18. MYCOPHENOLATE SODIUM [Concomitant]
     Active Substance: MYCOPHENOLATE SODIUM
  19. CYCLOSPORINE [Concomitant]
     Active Substance: CYCLOSPORINE
  20. MONTMORILLONITE [Concomitant]
     Active Substance: MONTMORILLONITE
  21. LEFLUNOMIDE [Concomitant]
     Active Substance: LEFLUNOMIDE
  22. METHYLPREDNISOLONE [Concomitant]
     Active Substance: METHYLPREDNISOLONE
  23. METHYLPREDNISOLONE SODIUM SUCCINATE [Concomitant]
     Active Substance: METHYLPREDNISOLONE SODIUM SUCCINATE
  24. TACROLIMUS [Concomitant]
     Active Substance: TACROLIMUS
  25. HUMAN IMMUNOGLOBULIN G [Concomitant]
     Active Substance: HUMAN IMMUNOGLOBULIN G
     Route: 042
  26. MYCOPHENOLATE SODIUM [Concomitant]
     Active Substance: MYCOPHENOLATE SODIUM
  27. WU ZHI DI WAN [Concomitant]

REACTIONS (5)
  - Ocular hypertension [Unknown]
  - Infection [Unknown]
  - Blood pressure increased [Unknown]
  - Hepatic function abnormal [Unknown]
  - Off label use [Unknown]
